FAERS Safety Report 4939284-X (Version None)
Quarter: 2006Q1

REPORT INFORMATION
  Report Type: 
  Country: None (occurrence: None)
  Receive Date: 20060310
  Receipt Date: 20060227
  Transmission Date: 20060701
  Serious: Yes (Disabling)
  Sender: FDA-Public Use
  Company Number: PHFR2006GB00996

PATIENT
  Age: 74 Year
  Sex: Female

DRUGS (3)
  1. THALIDOMIDE [Concomitant]
     Indication: MULTIPLE MYELOMA
     Dosage: 100MG/DAY
     Route: 048
  2. TRAMADOL HCL [Concomitant]
     Dosage: 1, PRN
     Route: 048
  3. ZOMETA [Suspect]
     Indication: MULTIPLE MYELOMA
     Dosage: 4 MG, QMO
     Route: 042
     Dates: start: 20020601, end: 20050912

REACTIONS (1)
  - OSTEONECROSIS [None]
